FAERS Safety Report 10044805 (Version 1)
Quarter: 2014Q1

REPORT INFORMATION
  Report Type: Spontaneous
  Country: US (occurrence: US)
  Receive Date: 20140328
  Receipt Date: 20140328
  Transmission Date: 20141002
  Serious: No
  Sender: FDA-Public Use
  Company Number: US-009507513-1403USA013235

PATIENT
  Sex: Female
  Weight: 91.5 kg

DRUGS (1)
  1. TIMOLOL MALEATE [Suspect]

REACTIONS (1)
  - Drug hypersensitivity [Unknown]
